FAERS Safety Report 11632124 (Version 1)
Quarter: 2015Q4

REPORT INFORMATION
  Report Type: Spontaneous
  Country: US (occurrence: US)
  Receive Date: 20151015
  Receipt Date: 20151015
  Transmission Date: 20160304
  Serious: Yes (Other)
  Sender: FDA-Public Use
  Company Number: US-MYLANLABS-2015M1031859

PATIENT
  Age: 79 Year
  Sex: Female

DRUGS (1)
  1. CALCITONIN SALMON. [Suspect]
     Active Substance: CALCITONIN SALMON
     Dosage: 1 DF, QD
     Route: 045

REACTIONS (1)
  - Epistaxis [Recovered/Resolved]
